FAERS Safety Report 5486590-9 (Version None)
Quarter: 2007Q3

REPORT INFORMATION
  Report Type: 
  Country: None (occurrence: None)
  Receive Date: 20070920
  Receipt Date: 20070416
  Transmission Date: 20080115
  Serious: Yes (Hospitalization)
  Sender: FDA-Public Use
  Company Number: 07P-163-0365209-00

PATIENT
  Age: 44 Year
  Sex: Male

DRUGS (2)
  1. DEPAKOTE ER [Suspect]
     Indication: CONVULSION
  2. DEPAKOTE ER [Suspect]
     Indication: EPILEPSY

REACTIONS (2)
  - COMA [None]
  - HYPERAMMONAEMIA [None]
